FAERS Safety Report 13015052 (Version 1)
Quarter: 2016Q4

REPORT INFORMATION
  Report Type: Spontaneous
  Country: US (occurrence: US)
  Receive Date: 20161210
  Receipt Date: 20161210
  Transmission Date: 20170207
  Serious: No
  Sender: FDA-Public Use
  Company Number: US-009507513-1611USA013983

PATIENT
  Sex: Male

DRUGS (1)
  1. DULERA [Suspect]
     Active Substance: FORMOTEROL FUMARATE DIHYDRATE\MOMETASONE FUROATE
     Dosage: 2 INHALATIONS, TWICE DAILY
     Route: 055

REACTIONS (4)
  - No adverse event [Unknown]
  - Product use issue [Unknown]
  - Wrong technique in product usage process [Unknown]
  - Product container issue [Unknown]
